FAERS Safety Report 20030020 (Version 1)
Quarter: 2021Q4

REPORT INFORMATION
  Report Type: Spontaneous
  Country: ES (occurrence: ES)
  Receive Date: 20211103
  Receipt Date: 20211103
  Transmission Date: 20220303
  Serious: Yes (Other)
  Sender: FDA-Public Use
  Company Number: None

PATIENT
  Age: 37 Year
  Sex: Male

DRUGS (5)
  1. IMRALDI [Suspect]
     Active Substance: ADALIMUMAB
     Indication: Colitis ulcerative
     Route: 058
     Dates: start: 20210526, end: 20210623
  2. BECLOMETHASONE DIPROPIONATE [Concomitant]
     Active Substance: BECLOMETHASONE DIPROPIONATE
     Indication: Product used for unknown indication
     Dosage: RECTAL SEMISOLID
     Route: 054
  3. CALCIUM CARBONATE\CHOLECALCIFEROL [Concomitant]
     Active Substance: CALCIUM CARBONATE\CHOLECALCIFEROL
     Indication: Product used for unknown indication
     Dosage: STRENGTH: 600 MG/1000 UI (30 BUCODISPERSABLES TABLETS)
     Route: 048
     Dates: start: 20210509, end: 20210820
  4. MESALAMINE [Concomitant]
     Active Substance: MESALAMINE
     Indication: Colitis ulcerative
     Dosage: 100 TABLETS (BLISTER AQUABA 130 / AL)
     Route: 048
     Dates: start: 20210422
  5. PREDNISONA PENSA [Concomitant]
     Indication: Product used for unknown indication
     Dosage: EFG, 30 TABLETS, UNKNOWN DOSE
     Route: 048
     Dates: start: 20210629, end: 20210701

REACTIONS (1)
  - Pneumonitis [Recovering/Resolving]

NARRATIVE: CASE EVENT DATE: 20210707
